FAERS Safety Report 8403241-1 (Version None)
Quarter: 2012Q2

REPORT INFORMATION
  Report Type: 
  Country: None (occurrence: None)
  Receive Date: 20120601
  Receipt Date: 20120530
  Transmission Date: 20120825
  Serious: Yes (Hospitalization)
  Sender: FDA-Public Use
  Company Number: US-MERCK-1109USA02132

PATIENT
  Age: 72 Year
  Sex: Female
  Weight: 55 kg

DRUGS (5)
  1. VITAMINS (UNSPECIFIED) [Concomitant]
     Route: 065
     Dates: start: 19860101
  2. FOSAMAX [Suspect]
     Indication: OSTEOPENIA
     Route: 048
     Dates: start: 20030418, end: 20100401
  3. CALCIUM (UNSPECIFIED) [Concomitant]
     Route: 065
     Dates: start: 19950101
  4. VITAMIN B (UNSPECIFIED) [Concomitant]
     Route: 065
     Dates: start: 19910101
  5. ASCORBIC ACID [Concomitant]
     Route: 065
     Dates: start: 19720101

REACTIONS (8)
  - GINGIVITIS [None]
  - FALL [None]
  - FEMORAL NECK FRACTURE [None]
  - BLOOD CHOLESTEROL INCREASED [None]
  - LOW TURNOVER OSTEOPATHY [None]
  - ASTHMA [None]
  - VITAMIN D DEFICIENCY [None]
  - OSTEOPOROSIS [None]
